FAERS Safety Report 6775059-7 (Version None)
Quarter: 2010Q2

REPORT INFORMATION
  Report Type: 
  Country: None (occurrence: None)
  Receive Date: 20100617
  Receipt Date: 20100611
  Transmission Date: 20101027
  Serious: Yes (Hospitalization)
  Sender: FDA-Public Use
  Company Number: B0631439B

PATIENT
  Sex: Female
  Weight: 0.9 kg

DRUGS (7)
  1. TELZIR [Suspect]
     Dosage: 700MG TWICE PER DAY
     Dates: start: 20081120
  2. COMBIVIR [Suspect]
     Dates: start: 20090904
  3. NORVIR [Suspect]
     Dates: start: 20081120
  4. KALETRA [Suspect]
     Dates: start: 20090904, end: 20091009
  5. BACTRIM [Suspect]
     Dates: start: 20081106, end: 20090922
  6. TRUVADA [Suspect]
     Dates: start: 20081106, end: 20090904
  7. ATRIPLA [Suspect]
     Dates: start: 20090601

REACTIONS (2)
  - DRUG EXPOSURE DURING PREGNANCY [None]
  - FOETAL GROWTH RETARDATION [None]
